FAERS Safety Report 6804570-5 (Version None)
Quarter: 2010Q2

REPORT INFORMATION
  Report Type: 
  Country: None (occurrence: None)
  Receive Date: 20100628
  Receipt Date: 20070417
  Transmission Date: 20101027
  Serious: Yes (Other)
  Sender: FDA-Public Use
  Company Number: US-PFIZER INC-2007031830

PATIENT
  Sex: Male

DRUGS (3)
  1. GEODON [Suspect]
     Indication: SCHIZOAFFECTIVE DISORDER
     Dates: start: 20060101
  2. DEPAKOTE [Suspect]
  3. BENZTROPINE MESYLATE [Concomitant]

REACTIONS (1)
  - PRIAPISM [None]
